FAERS Safety Report 25320463 (Version 1)
Quarter: 2025Q2

REPORT INFORMATION
  Report Type: Spontaneous
  Country: GB (occurrence: GB)
  Receive Date: 20250515
  Receipt Date: 20250515
  Transmission Date: 20250717
  Serious: Yes (Other)
  Sender: GALPHARM INTERNATIONAL
  Company Number: GB-MHRA-TPP47153730C9119814YC1746203127180

PATIENT
  Age: 37 Year
  Sex: Female
  Weight: 86 kg

DRUGS (3)
  1. IBUPROFEN [Suspect]
     Active Substance: IBUPROFEN
     Indication: Ill-defined disorder
     Route: 065
  2. EASYHALER [Concomitant]
     Indication: Ill-defined disorder
     Route: 065
     Dates: start: 20241217
  3. ALBUTEROL [Concomitant]
     Active Substance: ALBUTEROL
     Indication: Ill-defined disorder
     Route: 065
     Dates: start: 20241217

REACTIONS (2)
  - Gastrooesophageal reflux disease [Recovered/Resolved]
  - Drug hypersensitivity [Unknown]
